FAERS Safety Report 6945192-5 (Version None)
Quarter: 2010Q3

REPORT INFORMATION
  Report Type: 
  Country: None (occurrence: None)
  Receive Date: 20100827
  Receipt Date: 20100526
  Transmission Date: 20110219
  Serious: No
  Sender: FDA-Public Use
  Company Number: US-KINGPHARMUSA00001-K201000658

PATIENT
  Sex: Male
  Weight: 65.76 kg

DRUGS (3)
  1. FLECTOR [Suspect]
     Indication: ARTHRALGIA
     Dosage: 1 PATCH, EVERY 12 HOURS
     Route: 061
     Dates: start: 20100524, end: 20100525
  2. ADVICOR [Concomitant]
     Indication: BLOOD CHOLESTEROL INCREASED
     Dosage: 40 MG, QHS
     Route: 048
  3. METOPROLOL [Concomitant]
     Indication: GOUT
     Dosage: UNK
     Dates: start: 20091201

REACTIONS (3)
  - APPLICATION SITE DISCOLOURATION [None]
  - APPLICATION SITE RASH [None]
  - DRUG INEFFECTIVE [None]
